FAERS Safety Report 4951728-6 (Version None)
Quarter: 2006Q1

REPORT INFORMATION
  Report Type: 
  Country: None (occurrence: None)
  Receive Date: 20060323
  Receipt Date: 20060321
  Transmission Date: 20060701
  Serious: Yes (Other)
  Sender: FDA-Public Use
  Company Number: US-GLAXOSMITHKLINE-A0598422A

PATIENT
  Age: 52 Year
  Sex: Female

DRUGS (3)
  1. PAROXETINE HCL [Suspect]
     Indication: DRUG USE FOR UNKNOWN INDICATION
     Dosage: 40MG TWICE PER DAY
     Route: 048
  2. BUSPAR [Concomitant]
  3. VISTARIL [Concomitant]

REACTIONS (11)
  - ABNORMAL DREAMS [None]
  - ANXIETY [None]
  - DEPRESSED MOOD [None]
  - ENERGY INCREASED [None]
  - HALLUCINATION [None]
  - INSOMNIA [None]
  - OBSESSIVE THOUGHTS [None]
  - PARAESTHESIA [None]
  - PRESCRIBED OVERDOSE [None]
  - SCREAMING [None]
  - TINNITUS [None]
